FAERS Safety Report 11778409 (Version 1)
Quarter: 2015Q4

REPORT INFORMATION
  Report Type: Report from Study
  Country: US (occurrence: None)
  Receive Date: 20151125
  Receipt Date: 20151125
  Transmission Date: 20160304
  Serious: Yes (Other)
  Sender: FDA-Public Use
  Company Number: ADR-2015-00382

PATIENT
  Age: 66 Year
  Sex: Female

DRUGS (2)
  1. DILAUDID [Suspect]
     Active Substance: HYDROMORPHONE HYDROCHLORIDE
     Indication: CANCER PAIN
     Dosage: 249.78 MCG/DAY
  2. COMPOUNDED BACLOFEN INTRATHECAL(100 MCG/ML) [Suspect]
     Active Substance: BACLOFEN
     Indication: PAIN
     Dosage: 99.91 MCG/DAY

REACTIONS (6)
  - Nausea [None]
  - White blood cell count increased [None]
  - Medical device site erythema [None]
  - Implant site infection [None]
  - Vomiting [None]
  - Implant site extravasation [None]
